FAERS Safety Report 9248848 (Version 44)
Quarter: 2015Q2

REPORT INFORMATION
  Report Type: Spontaneous
  Country: CA (occurrence: CA)
  Receive Date: 20130423
  Receipt Date: 20150414
  Transmission Date: 20150821
  Serious: Yes (Other)
  Sender: FDA-Public Use
  Company Number: CA-ROCHE-1216997

PATIENT
  Age: 46 Year
  Sex: Female

DRUGS (31)
  1. XOLAIR [Suspect]
     Active Substance: OMALIZUMAB
     Route: 058
     Dates: start: 20131023
  2. XOLAIR [Suspect]
     Active Substance: OMALIZUMAB
     Route: 058
     Dates: start: 20140102
  3. XOLAIR [Suspect]
     Active Substance: OMALIZUMAB
     Route: 058
     Dates: start: 20140213
  4. XOLAIR [Suspect]
     Active Substance: OMALIZUMAB
     Route: 058
     Dates: start: 20140116
  5. XOLAIR [Suspect]
     Active Substance: OMALIZUMAB
     Route: 058
     Dates: start: 20140227
  6. XOLAIR [Suspect]
     Active Substance: OMALIZUMAB
     Route: 058
     Dates: start: 20140703
  7. XOLAIR [Suspect]
     Active Substance: OMALIZUMAB
     Route: 058
     Dates: start: 20150304
  8. XOLAIR [Suspect]
     Active Substance: OMALIZUMAB
     Route: 058
     Dates: start: 20130318
  9. XOLAIR [Suspect]
     Active Substance: OMALIZUMAB
     Route: 058
     Dates: start: 20130329
  10. XOLAIR [Suspect]
     Active Substance: OMALIZUMAB
     Route: 058
     Dates: start: 20130513
  11. XOLAIR [Suspect]
     Active Substance: OMALIZUMAB
     Route: 058
     Dates: start: 20140715
  12. XOLAIR [Suspect]
     Active Substance: OMALIZUMAB
     Route: 058
     Dates: start: 20140819
  13. XOLAIR [Suspect]
     Active Substance: OMALIZUMAB
     Route: 058
     Dates: start: 20150119
  14. XOLAIR [Suspect]
     Active Substance: OMALIZUMAB
     Route: 058
     Dates: start: 20130403
  15. MIRTAZAPINE. [Concomitant]
     Active Substance: MIRTAZAPINE
  16. XOLAIR [Suspect]
     Active Substance: OMALIZUMAB
     Indication: ASTHMA
     Route: 058
     Dates: start: 20121228
  17. XOLAIR [Suspect]
     Active Substance: OMALIZUMAB
     Route: 058
     Dates: start: 20130124
  18. XOLAIR [Suspect]
     Active Substance: OMALIZUMAB
     Route: 058
     Dates: start: 20131106
  19. XOLAIR [Suspect]
     Active Substance: OMALIZUMAB
     Route: 058
     Dates: start: 20140410
  20. MONTELUKAST [Concomitant]
     Active Substance: MONTELUKAST SODIUM
  21. LORATADINE. [Concomitant]
     Active Substance: LORATADINE
  22. XOLAIR [Suspect]
     Active Substance: OMALIZUMAB
     Route: 058
     Dates: start: 20140327
  23. XOLAIR [Suspect]
     Active Substance: OMALIZUMAB
     Route: 058
     Dates: start: 20141014
  24. XOLAIR [Suspect]
     Active Substance: OMALIZUMAB
     Route: 058
     Dates: start: 20130625
  25. SYMBICORT [Concomitant]
     Active Substance: BUDESONIDE\FORMOTEROL FUMARATE DIHYDRATE
  26. VENTOLINE [Concomitant]
     Active Substance: ALBUTEROL
     Route: 065
  27. XOLAIR [Suspect]
     Active Substance: OMALIZUMAB
     Route: 058
     Dates: start: 20130710
  28. XOLAIR [Suspect]
     Active Substance: OMALIZUMAB
     Route: 058
     Dates: start: 20131204
  29. XOLAIR [Suspect]
     Active Substance: OMALIZUMAB
     Route: 058
     Dates: start: 20140806
  30. XOLAIR [Suspect]
     Active Substance: OMALIZUMAB
     Route: 058
     Dates: start: 20150217
  31. XOLAIR [Suspect]
     Active Substance: OMALIZUMAB
     Route: 058
     Dates: start: 20150318

REACTIONS (40)
  - Cough [Not Recovered/Not Resolved]
  - Nasal disorder [Unknown]
  - Nasal congestion [Not Recovered/Not Resolved]
  - Urticaria [Recovering/Resolving]
  - Wheezing [Not Recovered/Not Resolved]
  - Injection site swelling [Unknown]
  - Pneumonia [Recovered/Resolved]
  - Body temperature decreased [Unknown]
  - Rhonchi [Unknown]
  - Confusional state [Unknown]
  - Hypersensitivity [Not Recovered/Not Resolved]
  - Pain of skin [Unknown]
  - Eye pruritus [Unknown]
  - Injection site erythema [Unknown]
  - Fatigue [Not Recovered/Not Resolved]
  - Asthma [Unknown]
  - Sinus congestion [Not Recovered/Not Resolved]
  - Muscle spasms [Unknown]
  - General physical condition abnormal [Unknown]
  - Ear congestion [Unknown]
  - Nasopharyngitis [Unknown]
  - Headache [Unknown]
  - Malaise [Unknown]
  - Sinusitis [Unknown]
  - Erythema [Recovered/Resolved]
  - Dizziness [Unknown]
  - Upper respiratory tract congestion [Unknown]
  - Obstructive airways disorder [Unknown]
  - Pain [Unknown]
  - Rales [Unknown]
  - Breath sounds abnormal [Unknown]
  - Sinus headache [Unknown]
  - Influenza [Unknown]
  - Heart rate increased [Not Recovered/Not Resolved]
  - Respiratory tract congestion [Unknown]
  - Injection site urticaria [Recovering/Resolving]
  - Nausea [Recovering/Resolving]
  - Feeling abnormal [Unknown]
  - Musculoskeletal chest pain [Unknown]
  - Ear infection [Unknown]

NARRATIVE: CASE EVENT DATE: 20130124
